FAERS Safety Report 19125667 (Version 1)
Quarter: 2021Q2

REPORT INFORMATION
  Report Type: Spontaneous
  Country: US (occurrence: US)
  Receive Date: 20210412
  Receipt Date: 20210412
  Transmission Date: 20210717
  Serious: No
  Sender: FDA-Public Use
  Company Number: US-SA-2021SA116878

PATIENT
  Sex: Male

DRUGS (1)
  1. ALLEGRA ALLERGY [Suspect]
     Active Substance: FEXOFENADINE HYDROCHLORIDE
     Dosage: IN THE MORNING

REACTIONS (5)
  - Rhinorrhoea [Unknown]
  - Headache [Unknown]
  - Drug ineffective [Unknown]
  - Lacrimation increased [Unknown]
  - Cough [Unknown]
